FAERS Safety Report 10134592 (Version 1)
Quarter: 2014Q2

REPORT INFORMATION
  Report Type: Spontaneous
  Country: US (occurrence: US)
  Receive Date: 20140428
  Receipt Date: 20140428
  Transmission Date: 20141212
  Serious: No
  Sender: FDA-Public Use
  Company Number: US-PFIZER INC-2014116731

PATIENT
  Age: 65 Year
  Sex: Male
  Weight: 95.24 kg

DRUGS (1)
  1. LYRICA [Suspect]
     Indication: NEUROPATHY PERIPHERAL
     Dosage: UNK, DAILY
     Dates: start: 201404

REACTIONS (4)
  - Hyperhidrosis [Unknown]
  - Feeling cold [Unknown]
  - Nervousness [Unknown]
  - Drug intolerance [Unknown]
